FAERS Safety Report 17245343 (Version 1)
Quarter: 2020Q1

REPORT INFORMATION
  Report Type: Other
  Country: AU (occurrence: AU)
  Receive Date: 20200108
  Receipt Date: 20200108
  Transmission Date: 20200409
  Serious: Yes (Death, Hospitalization, Other)
  Sender: FDA-Public Use
  Company Number: AU-SUNRISE PHARMACEUTICAL, INC.-2078642

PATIENT
  Age: 39 Year
  Sex: Male

DRUGS (4)
  1. OXAZEPAM. [Suspect]
     Active Substance: OXAZEPAM
     Route: 065
  2. METHADONE [Suspect]
     Active Substance: METHADONE HYDROCHLORIDE
     Route: 065
  3. OXYCODONE HYDROCHLORIDE. [Suspect]
     Active Substance: OXYCODONE HYDROCHLORIDE
     Indication: PRODUCT USED FOR UNKNOWN INDICATION
     Route: 065
  4. NITRAZEPAM [Suspect]
     Active Substance: NITRAZEPAM
     Route: 065

REACTIONS (16)
  - Pneumonia [Unknown]
  - Cardiac arrest [Unknown]
  - Brain injury [Unknown]
  - Rhabdomyolysis [Unknown]
  - Compartment syndrome [Unknown]
  - Coagulopathy [Unknown]
  - Loss of consciousness [Unknown]
  - Overdose [Unknown]
  - Acute kidney injury [Unknown]
  - Hepatic failure [Unknown]
  - Condition aggravated [Unknown]
  - Multiple organ dysfunction syndrome [Fatal]
  - Renal tubular necrosis [Unknown]
  - Toxicity to various agents [Fatal]
  - Disseminated intravascular coagulation [Unknown]
  - Metabolic acidosis [Unknown]
